FAERS Safety Report 23351869 (Version 1)
Quarter: 2023Q4

REPORT INFORMATION
  Report Type: Spontaneous
  Country: KZ (occurrence: None)
  Receive Date: 20231229
  Receipt Date: 20231229
  Transmission Date: 20240109
  Serious: Yes (Death)
  Sender: FDA-Public Use
  Company Number: 2023A294864

PATIENT
  Age: 16 Year
  Sex: Male
  Weight: 40 kg

DRUGS (2)
  1. SELUMETINIB [Suspect]
     Active Substance: SELUMETINIB
     Indication: Neurofibromatosis
     Route: 048
     Dates: start: 20231118, end: 20231219
  2. SELUMETINIB [Suspect]
     Active Substance: SELUMETINIB
     Indication: Neurofibroma
     Route: 048
     Dates: start: 20231118, end: 20231219

REACTIONS (2)
  - Paralysis [Fatal]
  - Malignant neoplasm of spinal cord [Fatal]

NARRATIVE: CASE EVENT DATE: 20231219
